FAERS Safety Report 6921130-6 (Version None)
Quarter: 2010Q3

REPORT INFORMATION
  Report Type: 
  Country: None (occurrence: None)
  Receive Date: 20100804
  Receipt Date: 20090825
  Transmission Date: 20110219
  Serious: No
  Sender: FDA-Public Use
  Company Number: 2009-1969

PATIENT
  Age: 27 Year
  Sex: Male
  Weight: 113.4 kg

DRUGS (8)
  1. SOMATULINE DEPOT [Suspect]
     Indication: ACROMEGALY
     Dosage: (60 MG,1 IN 1 M), SUBCUTANEOUS
     Route: 058
     Dates: start: 20090401
  2. SYNTHROIDE (LEVOTHYROXINE SODIUM) [Concomitant]
  3. FLOAMX (MORNIFLUMATE) [Concomitant]
  4. SOMAVERT [Concomitant]
  5. PREDNISONE [Concomitant]
  6. ANDROGEL [Concomitant]
  7. VITAMIN B (VITAMIN B) [Concomitant]
  8. FISH OIL (FISH OIL) [Concomitant]

REACTIONS (2)
  - DIZZINESS [None]
  - MUSCLE TWITCHING [None]
